FAERS Safety Report 17466610 (Version 2)
Quarter: 2020Q1

REPORT INFORMATION
  Report Type: Spontaneous
  Country: GB (occurrence: GB)
  Receive Date: 20200227
  Receipt Date: 20200312
  Transmission Date: 20200409
  Serious: Yes (Other)
  Sender: FDA-Public Use
  Company Number: GB-ACCORD-173730

PATIENT
  Age: 78 Year
  Sex: Female
  Weight: 90 kg

DRUGS (13)
  1. FOSTAIR [Concomitant]
     Active Substance: BECLOMETHASONE\FORMOTEROL
     Dosage: PUFFS
     Dates: start: 20190522
  2. SALBUTAMOL [Concomitant]
     Active Substance: ALBUTEROL
  3. DOXAZOSIN [Suspect]
     Active Substance: DOXAZOSIN MESYLATE
     Indication: ESSENTIAL HYPERTENSION
     Route: 048
     Dates: start: 20200128, end: 20200130
  4. DEXCEL-PHARMA OMEPRAZOLE [Concomitant]
     Active Substance: OMEPRAZOLE
     Dates: start: 20181231
  5. LOSARTAN. [Concomitant]
     Active Substance: LOSARTAN
     Dates: start: 20181231
  6. PREDNISOLONE. [Concomitant]
     Active Substance: PREDNISOLONE
     Dosage: TAKE EVERY MORNING
     Dates: start: 20191224, end: 20191231
  7. YALTORMIN SR [Concomitant]
     Dosage: TAKE WITH FOOD
     Dates: start: 20190109
  8. LEVOTHYROXINE. [Concomitant]
     Active Substance: LEVOTHYROXINE
     Dates: start: 20181231
  9. DOXYCYCLINE. [Concomitant]
     Active Substance: DOXYCYCLINE
     Dosage: TAKE TWO ON FIRST DAY, THEN ONE EACH DAY
     Dates: start: 20191224, end: 20191231
  10. FENBID [Concomitant]
     Active Substance: IBUPROFEN
     Dosage: RUB INTO THE AFFECTED AREA FO...
     Dates: start: 20190225
  11. HYPROMELLOSE/HYPROMELLOSE PHTHALATE [Concomitant]
     Dates: start: 20181231
  12. BENDROFLUMETHIAZIDE [Concomitant]
     Active Substance: BENDROFLUMETHIAZIDE
     Dosage: TAKE EACH MORNING
     Dates: start: 20200203
  13. VENTOLIN [Concomitant]
     Active Substance: ALBUTEROL SULFATE
     Dosage: PUFFS, FOUR TIMES A DAY
     Dates: start: 20190130

REACTIONS (9)
  - Dyspnoea [Unknown]
  - Chest discomfort [Recovered/Resolved]
  - Nausea [Recovered/Resolved]
  - Fatigue [Unknown]
  - Vision blurred [Recovered/Resolved]
  - Confusional state [Recovered/Resolved]
  - Cognitive disorder [Unknown]
  - Vomiting [Recovered/Resolved]
  - Feeling abnormal [Recovered/Resolved]

NARRATIVE: CASE EVENT DATE: 20200128
